FAERS Safety Report 14013853 (Version 2)
Quarter: 2018Q1

REPORT INFORMATION
  Report Type: Spontaneous
  Country: CA (occurrence: CA)
  Receive Date: 20170926
  Receipt Date: 20180212
  Transmission Date: 20180508
  Serious: Yes (Hospitalization, Other)
  Sender: FDA-Public Use
  Company Number: CA-BAUSCH-BL-2017-027932

PATIENT
  Age: 39 Year
  Sex: Female

DRUGS (3)
  1. CLINDAMYCIN PHOSPHATE INJ 150 MG/ML [Suspect]
     Active Substance: CLINDAMYCIN PHOSPHATE
     Indication: PROPHYLAXIS
     Dosage: LIQUID INTRAMUSCULAR
     Route: 065
  2. CLINDAMYCIN PHOSPHATE INJ 150 MG/ML [Suspect]
     Active Substance: CLINDAMYCIN PHOSPHATE
     Indication: ANTIBIOTIC THERAPY
  3. CLINDAMYCIN PHOSPHATE INJ 150 MG/ML [Suspect]
     Active Substance: CLINDAMYCIN PHOSPHATE
     Indication: PREOPERATIVE CARE

REACTIONS (5)
  - Live birth [Recovered/Resolved]
  - Maternal exposure during pregnancy [Recovered/Resolved]
  - Delivery [Recovered/Resolved]
  - Clostridium difficile infection [Recovered/Resolved]
  - Diarrhoea [Recovered/Resolved]
